FAERS Safety Report 10551187 (Version 2)
Quarter: 2015Q1

REPORT INFORMATION
  Report Type: Spontaneous
  Country: US (occurrence: None)
  Receive Date: 20141020
  Receipt Date: 20150120
  Transmission Date: 20150720
  Serious: No
  Sender: FDA-Public Use
  Company Number: AEGR000649

PATIENT
  Age: 76 Year
  Sex: Female
  Weight: 89.8 kg

DRUGS (14)
  1. VITAMIN D (COLECALCIFEROL) [Concomitant]
  2. EFFIENT (PRASUGREL HYDROCHLORIDE) [Concomitant]
  3. PRINIVIL (LISINOPRIL DIHYDRATE) [Concomitant]
  4. CLONIDINE (CLONIDINE HYDROCHLORIDE) [Concomitant]
  5. METFORMIN [Concomitant]
     Active Substance: METFORMIN HYDROCHLORIDE
  6. CYMBALTA [Concomitant]
     Active Substance: DULOXETINE HYDROCHLORIDE
  7. OMEPRAZOLE. [Concomitant]
     Active Substance: OMEPRAZOLE
  8. JUXTAPID [Suspect]
     Active Substance: LOMITAPIDE MESYLATE
     Indication: TYPE IIA HYPERLIPIDAEMIA
     Route: 048
     Dates: start: 201407, end: 2014
  9. LOPRESSOR [Concomitant]
     Active Substance: METOPROLOL TARTRATE
  10. OMEGA 3 FISH OIL (FISH OIL) [Concomitant]
     Active Substance: OMEGA-3 FATTY ACIDS
  11. VITAMIN E (TOCOPHERYL ACETATE) [Concomitant]
  12. ALLOPURINOL. [Concomitant]
     Active Substance: ALLOPURINOL
  13. ASPIRIN (ACETYLSALICYLIC ACID) [Concomitant]
     Active Substance: ASPIRIN
  14. ZANAFLEX [Concomitant]
     Active Substance: TIZANIDINE HYDROCHLORIDE

REACTIONS (6)
  - Nausea [None]
  - Myalgia [None]
  - Weight decreased [None]
  - Vomiting [None]
  - Drug interaction [None]
  - Therapy cessation [None]

NARRATIVE: CASE EVENT DATE: 2014
